FAERS Safety Report 5745828-0 (Version None)
Quarter: 2008Q2

REPORT INFORMATION
  Report Type: 
  Country: None (occurrence: None)
  Receive Date: 20080521
  Receipt Date: 20080513
  Transmission Date: 20081010
  Serious: Yes (Hospitalization)
  Sender: FDA-Public Use
  Company Number: DE-ABBOTT-08P-062-0452563-00

PATIENT
  Sex: Female

DRUGS (2)
  1. REDUCTIL 15MG [Suspect]
     Indication: WEIGHT CONTROL
     Dosage: DAILY
     Route: 048
     Dates: start: 20070801, end: 20070801
  2. REDUCTIL 15MG [Suspect]
     Dosage: DAILY
     Route: 048
     Dates: start: 20080201, end: 20080201

REACTIONS (1)
  - CARDIOVASCULAR DISORDER [None]
